FAERS Safety Report 5670206-2 (Version None)
Quarter: 2008Q1

REPORT INFORMATION
  Report Type: 
  Country: None (occurrence: None)
  Receive Date: 20080312
  Receipt Date: 20080221
  Transmission Date: 20080703
  Serious: Yes (Hospitalization)
  Sender: FDA-Public Use
  Company Number: 02100-JPN-07-0649

PATIENT
  Age: 57 Year
  Sex: Female

DRUGS (48)
  1. PLETAL [Suspect]
     Indication: CEREBROVASCULAR ACCIDENT
     Dosage: 100 MG,  BID ORAL
     Route: 048
     Dates: start: 20070912, end: 20080111
  2. PLAVIX [Suspect]
     Indication: CEREBROVASCULAR ACCIDENT
     Dosage: 75  MG, QD, ORAL
     Route: 048
     Dates: start: 20070912, end: 20080111
  3. METFORMIN HCL [Concomitant]
  4. GLIMEPIRIDE [Concomitant]
  5. ATORVASTATIN CALCIUM  (ATORVASTATIN CALCIUM) TABLET [Concomitant]
  6. CITALOPRAM HYDROBROMIDE [Concomitant]
  7. RAUBASINE-ALMITRINE BISMESILATE (RAUBASINE-ALMITRINE BISMESILATE) [Concomitant]
  8. RANITIDINE [Concomitant]
  9. LACTOBACILLUS ACIDOPHILLUS  (LACTOBACILLUS ACIDOPHILLUS) [Concomitant]
  10. ASPIRIN  (ACETYLSALICYLIC ACID) TBALET [Concomitant]
  11. TELMISARTAN-HYDROCHLOROTHIAZIDE [Concomitant]
  12. CLOPIDOGREL [Concomitant]
  13. BISACODYL  (BISACODYL) [Concomitant]
  14. TAMSULOSIN HYDROCHLORIDE     (TAMSULOSIN HYDROCHLORIDE) [Concomitant]
  15. METHYLPREDNISOLONE ACEPONATE [Concomitant]
  16. .................... [Concomitant]
  17. TRAMADOL HCL [Concomitant]
  18. PAN-B-COMP              (MADE  BY DAI-HAN)             (PAN-B-COMP [Concomitant]
  19. MAGNESIUM OXIDE    (MAGNESIUM OXIDE) [Concomitant]
  20. ALAXYL GRANULE   (MADE BY BUKWANG)       ALAXYL GRANULE [Concomitant]
  21. ESCITALOPRAM OXALATE                   (ESCITALOPRAM OXALATE) [Concomitant]
  22. DEXTROSE/SODIUM CHLORIDE             (DEXTROSE/SODIUM CHLORIDE) [Concomitant]
  23. SODIUM CHLORIDE 0.9% [Concomitant]
  24. POTASSIUM CHLORIDE [Concomitant]
  25. METOCLOPRAMIDE HYDROCHLORIDE [Concomitant]
  26. GLUCOSE 10% (GLUCOSE) [Concomitant]
  27. HUMAN REGULAR INSULIN       (HUMAN REGULAR INSULIN) [Concomitant]
  28. ALMAGATE (ALMAGATE) [Concomitant]
  29. AMINO ACID 10% (AMINO ACID) [Concomitant]
  30. COMBIFLEX PERI INFU. BAG (MADE BY CHOONG-WAE) (COMBIFLEX PERI INFU. BA [Concomitant]
  31. INSULIN LISPRO (INSULIN LISPRO) [Concomitant]
  32. STREPTASE [Concomitant]
  33. AMOXICILLIN/CLAVULANATE (AMOXICILLIN/CLAVULANATE) [Concomitant]
  34. DOXOFYLLINE (DOXOFYLLINE) [Concomitant]
  35. GLUCOSE/SALINE 5%            (GLUCOSE/SALINE 5%) [Concomitant]
  36. LANSOPRAZOLE [Concomitant]
  37. ERYTHROMYCIN [Concomitant]
  38. NPH INSULIN (INSULIN INJECTION, ISOPHANE) [Concomitant]
  39. HUMAN INSULIN (HUMAN INSULIN) [Concomitant]
  40. ACETYLCYSTEINE [Concomitant]
  41. HUMAN NPH INSULIN (HUMAN NPH INSULIN) [Concomitant]
  42. HUMAN REGULAR INSULIN (HUMAN REGULAR INSULIN) [Concomitant]
  43. ACEBROPHYLLINE (ACEBROPHYLLINE) [Concomitant]
  44. NITROGLYCERIN [Concomitant]
  45. BISOPROLOL HEMIFUMARATE (BISOPROLOL HEMIFUMARATE) [Concomitant]
  46. DOMPERIDONE MALEATE (DOMPERIDONE MALEATE) [Concomitant]
  47. CAFSOL (MADE BY CHONG-KUN-DANG) [Concomitant]
  48. INTRALIPID                      (MADE BY GREENCROSS) [Concomitant]

REACTIONS (8)
  - CELLULITIS [None]
  - DIABETIC GASTROPATHY [None]
  - NAUSEA [None]
  - ORAL INTAKE REDUCED [None]
  - PALLOR [None]
  - SKIN GRAFT [None]
  - TOOTHACHE [None]
  - VOMITING [None]
